FAERS Safety Report 23149793 (Version 1)
Quarter: 2023Q4

REPORT INFORMATION
  Report Type: Spontaneous
  Country: FR (occurrence: FR)
  Receive Date: 20231106
  Receipt Date: 20231106
  Transmission Date: 20240109
  Serious: Yes (Hospitalization, Other)
  Sender: FDA-Public Use
  Company Number: None

PATIENT
  Age: 68 Year
  Sex: Male
  Weight: 86 kg

DRUGS (9)
  1. YESCARTA [Suspect]
     Active Substance: AXICABTAGENE CILOLEUCEL
     Indication: Diffuse large B-cell lymphoma refractory
     Dosage: UNK UNK, ONCE
     Route: 042
     Dates: start: 20230425, end: 20230425
  2. FLUDARABINE [Suspect]
     Active Substance: FLUDARABINE PHOSPHATE
     Indication: Diffuse large B-cell lymphoma refractory
     Dosage: 60 MG, QD
     Route: 042
     Dates: start: 20230419, end: 20230421
  3. CYCLOPHOSPHAMIDE [Suspect]
     Active Substance: CYCLOPHOSPHAMIDE
     Indication: Diffuse large B-cell lymphoma refractory
     Dosage: 1000 MG, QD
     Route: 042
     Dates: start: 20230419, end: 20230421
  4. IRBESARTAN [Concomitant]
     Active Substance: IRBESARTAN
  5. BACTRIM [Concomitant]
     Active Substance: SULFAMETHOXAZOLE\TRIMETHOPRIM
  6. LEUCOVORIN CALCIUM [Concomitant]
     Active Substance: LEUCOVORIN CALCIUM
  7. SKENAN [Concomitant]
     Active Substance: MORPHINE SULFATE
  8. VALACYCLOVIR HYDROCHLORIDE [Concomitant]
     Active Substance: VALACYCLOVIR HYDROCHLORIDE
  9. LANSOPRAZOLE [Concomitant]
     Active Substance: LANSOPRAZOLE

REACTIONS (3)
  - Febrile bone marrow aplasia [Recovered/Resolved]
  - Cytokine release syndrome [Recovered/Resolved]
  - Immune effector cell-associated neurotoxicity syndrome [Not Recovered/Not Resolved]

NARRATIVE: CASE EVENT DATE: 20230426
